FAERS Safety Report 11779576 (Version 2)
Quarter: 2016Q3

REPORT INFORMATION
  Report Type: Spontaneous
  Country: US (occurrence: US)
  Receive Date: 20151125
  Receipt Date: 20160713
  Transmission Date: 20161109
  Serious: Yes (Hospitalization, Other)
  Sender: FDA-Public Use
  Company Number: US-JAZZ-JPI-P-033199

PATIENT
  Sex: Female
  Weight: 53 kg

DRUGS (7)
  1. XYREM [Suspect]
     Active Substance: SODIUM OXYBATE
     Dosage: 3 G, BID
     Route: 048
     Dates: start: 200810
  2. PREGABALIN. [Suspect]
     Active Substance: PREGABALIN
     Indication: FIBROMYALGIA
     Dosage: SINGLE
  3. VITAMIN B12 [Concomitant]
     Active Substance: CYANOCOBALAMIN
     Indication: VITAMIN B12 DECREASED
     Dosage: UNK UNKNOWN, SINGLE
     Route: 051
  4. XYREM [Suspect]
     Active Substance: SODIUM OXYBATE
     Dosage: DOSE ADJUSTMENTS
     Route: 048
     Dates: start: 200805, end: 200809
  5. METHYLPHENIDATE. [Concomitant]
     Active Substance: METHYLPHENIDATE
     Indication: SOMNOLENCE
     Dosage: UNK UNKNOWN, SINGLE
  6. IRON [Concomitant]
     Active Substance: IRON
     Indication: SERUM FERRITIN DECREASED
  7. XYREM [Suspect]
     Active Substance: SODIUM OXYBATE
     Indication: NARCOLEPSY
     Dosage: 2.25 G, BID
     Route: 048
     Dates: start: 20080327, end: 200805

REACTIONS (10)
  - Intervertebral disc protrusion [Recovered/Resolved]
  - Agitation [Recovered/Resolved]
  - Weight increased [Not Recovered/Not Resolved]
  - Hysterectomy [Recovered/Resolved]
  - Uterine haemorrhage [Recovered/Resolved]
  - Weight decreased [Recovered/Resolved]
  - Headache [Recovered/Resolved]
  - Hypoaesthesia [Recovered/Resolved]
  - Nausea [Recovered/Resolved]
  - Irritability [Recovered/Resolved]

NARRATIVE: CASE EVENT DATE: 2008
